FAERS Safety Report 5036400-9 (Version None)
Quarter: 2006Q2

REPORT INFORMATION
  Report Type: 
  Country: None (occurrence: None)
  Receive Date: 20060601
  Receipt Date: 20060412
  Transmission Date: 20061013
  Serious: No
  Sender: FDA-Public Use
  Company Number: US200604002134

PATIENT
  Age: 82 Year
  Sex: Female

DRUGS (3)
  1. CYMBALTA [Suspect]
     Indication: DEPRESSION
     Dosage: 30 MG
     Dates: start: 20060411, end: 20060411
  2. DAYPRO /USA/(OXAPROZIN) [Concomitant]
  3. ASA (ASPIRIN (ACETYLSALICYLIC ACID) [Concomitant]

REACTIONS (1)
  - CHEST PAIN [None]
